FAERS Safety Report 6902031-6 (Version None)
Quarter: 2010Q3

REPORT INFORMATION
  Report Type: 
  Country: None (occurrence: None)
  Receive Date: 20100803
  Receipt Date: 20080414
  Transmission Date: 20110219
  Serious: Yes (Hospitalization, Disabling, Other)
  Sender: FDA-Public Use
  Company Number: US-PFIZER INC-2008033588

PATIENT
  Sex: Female
  Weight: 113.4 kg

DRUGS (6)
  1. LYRICA [Suspect]
  2. ACTONEL [Concomitant]
  3. CELEBREX [Concomitant]
  4. OMEPRAZOLE [Concomitant]
  5. TRAMADOL HYDROCHLORIDE [Concomitant]
  6. ZOLPIDEM [Concomitant]

REACTIONS (3)
  - ASTHENIA [None]
  - FALL [None]
  - SPINAL FRACTURE [None]
